FAERS Safety Report 21015905 (Version 1)
Quarter: 2022Q2

REPORT INFORMATION
  Report Type: Spontaneous
  Country: IN (occurrence: IN)
  Receive Date: 20220628
  Receipt Date: 20220628
  Transmission Date: 20220720
  Serious: Yes (Hospitalization)
  Sender: FDA-Public Use
  Company Number: IN-Axellia-004365

PATIENT
  Age: 57 Year
  Sex: Male

DRUGS (4)
  1. COLISTIMETHATE SODIUM [Suspect]
     Active Substance: COLISTIMETHATE SODIUM
     Indication: Klebsiella infection
     Dosage: 3 MILLION UNITS (MU) THRICE DAILY ADDED ON THIRD POSTOPERATIVE DAY
     Route: 042
  2. MEROPENEM [Concomitant]
     Active Substance: MEROPENEM
     Indication: Klebsiella infection
  3. TEICOPLANIN [Concomitant]
     Active Substance: TEICOPLANIN
     Indication: Klebsiella infection
  4. METRONIDAZOLE [Concomitant]
     Active Substance: METRONIDAZOLE
     Indication: Klebsiella infection

REACTIONS (1)
  - Bartter^s syndrome [Recovered/Resolved]
